FAERS Safety Report 9292734 (Version 1)
Quarter: 2013Q2

REPORT INFORMATION
  Report Type: Spontaneous
  Country: US (occurrence: US)
  Receive Date: 20130515
  Receipt Date: 20130515
  Transmission Date: 20140414
  Serious: Yes (Other)
  Sender: FDA-Public Use
  Company Number: US-RB-053335-13

PATIENT
  Age: 27 Year
  Sex: Female

DRUGS (1)
  1. SUBOXONE FILM [Suspect]
     Indication: DRUG DEPENDENCE
     Dosage: SUBOXONE FILM
     Route: 060
     Dates: end: 201203

REACTIONS (4)
  - Convulsion [Recovered/Resolved]
  - Condition aggravated [Recovered/Resolved]
  - Panic attack [Recovered/Resolved]
  - Condition aggravated [Recovered/Resolved]
